FAERS Safety Report 7068143-4 (Version None)
Quarter: 2010Q4

REPORT INFORMATION
  Report Type: 
  Country: None (occurrence: None)
  Receive Date: 20101028
  Receipt Date: 20100917
  Transmission Date: 20110411
  Serious: Yes (Death, Life-Threatening, Hospitalization, Other)
  Sender: FDA-Public Use
  Company Number: US-BAXTER-2008BH003743

PATIENT
  Age: 55 Year
  Sex: Female
  Weight: 34 kg

DRUGS (33)
  1. HEPARIN SODIUM INJECTION [Suspect]
     Indication: THROMBOSIS PROPHYLAXIS
     Route: 010
     Dates: start: 20070701
  2. HEPARIN SODIUM INJECTION [Suspect]
     Indication: CENTRAL VENOUS CATHETERISATION
     Route: 010
     Dates: start: 20070701
  3. HEPARIN SODIUM INJECTION [Suspect]
     Route: 010
     Dates: start: 20070701
  4. HEPARIN SODIUM INJECTION [Suspect]
     Route: 010
     Dates: start: 20070701
  5. HEPARIN SODIUM INJECTION [Suspect]
     Route: 040
     Dates: start: 20070927, end: 20070927
  6. HEPARIN SODIUM INJECTION [Suspect]
     Route: 040
     Dates: start: 20070927, end: 20070927
  7. HEPARIN SODIUM INJECTION [Suspect]
     Route: 042
     Dates: start: 20070726, end: 20070726
  8. HEPARIN SODIUM INJECTION [Suspect]
     Route: 042
     Dates: start: 20070726, end: 20070726
  9. HEPARIN SODIUM INJECTION [Suspect]
     Route: 042
     Dates: start: 20070925, end: 20071002
  10. HEPARIN SODIUM INJECTION [Suspect]
     Route: 042
     Dates: start: 20070925, end: 20071002
  11. HEPARIN SODIUM INJECTION [Suspect]
     Route: 040
     Dates: start: 20071018, end: 20071018
  12. HEPARIN SODIUM INJECTION [Suspect]
     Route: 040
     Dates: start: 20071018, end: 20071018
  13. HEPARIN SODIUM 10,000 UNITS IN SODIUM CHLORIDE 0.45% [Suspect]
     Indication: ATRIAL FIBRILLATION
     Route: 042
     Dates: start: 20071018, end: 20071018
  14. HEPARIN SODIUM 10,000 UNITS IN SODIUM CHLORIDE 0.45% [Suspect]
     Route: 042
     Dates: start: 20070927, end: 20070927
  15. HEPARIN SODIUM 10,000 UNITS IN SODIUM CHLORIDE 0.45% [Suspect]
     Route: 042
     Dates: start: 20071018, end: 20071022
  16. HEPARIN SODIUM 10,000 UNITS IN SODIUM CHLORIDE 0.45% [Suspect]
     Route: 042
     Dates: start: 20070927, end: 20071001
  17. DIGOXIN [Suspect]
     Indication: ATRIAL FIBRILLATION
     Route: 048
     Dates: start: 20071001, end: 20071018
  18. WARFARIN SODIUM [Concomitant]
     Indication: PRODUCT USED FOR UNKNOWN INDICATION
     Route: 065
  19. RANITIDINE [Concomitant]
     Indication: PRODUCT USED FOR UNKNOWN INDICATION
     Route: 065
  20. TOPROL-XL [Concomitant]
     Indication: PRODUCT USED FOR UNKNOWN INDICATION
     Route: 065
  21. FOLBEE PLUS [Concomitant]
     Indication: PRODUCT USED FOR UNKNOWN INDICATION
     Route: 065
  22. LISINOPRIL [Concomitant]
     Indication: PRODUCT USED FOR UNKNOWN INDICATION
     Route: 065
  23. FOLIC ACID [Concomitant]
     Indication: PRODUCT USED FOR UNKNOWN INDICATION
     Route: 065
  24. SYNTHROID [Concomitant]
     Indication: PRODUCT USED FOR UNKNOWN INDICATION
     Route: 048
  25. DARBEPOETIN ALFA [Concomitant]
     Indication: PRODUCT USED FOR UNKNOWN INDICATION
     Route: 065
  26. ACETAMINOPHEN [Concomitant]
     Indication: PRODUCT USED FOR UNKNOWN INDICATION
     Route: 048
  27. VITAMIN D [Concomitant]
     Indication: PRODUCT USED FOR UNKNOWN INDICATION
     Route: 048
  28. FOSAMAX [Concomitant]
     Indication: PRODUCT USED FOR UNKNOWN INDICATION
     Route: 048
  29. DESFERAL [Concomitant]
     Indication: PRODUCT USED FOR UNKNOWN INDICATION
     Route: 042
  30. LASIX [Concomitant]
     Indication: PRODUCT USED FOR UNKNOWN INDICATION
     Route: 048
  31. ASACOL [Concomitant]
     Indication: PRODUCT USED FOR UNKNOWN INDICATION
     Route: 048
  32. AMITRIPTYLINE HCL [Concomitant]
     Indication: PRODUCT USED FOR UNKNOWN INDICATION
     Route: 048
  33. HYDROXYUREA [Concomitant]
     Indication: PRODUCT USED FOR UNKNOWN INDICATION
     Route: 048

REACTIONS (29)
  - ABDOMINAL PAIN [None]
  - ACUTE RESPIRATORY FAILURE [None]
  - ASTHENIA [None]
  - ATRIAL FIBRILLATION [None]
  - BRADYCARDIA [None]
  - CARDIAC FAILURE CONGESTIVE [None]
  - CHILLS [None]
  - COAGULOPATHY [None]
  - COMA [None]
  - DECREASED APPETITE [None]
  - DIARRHOEA [None]
  - DIZZINESS [None]
  - DYSPNOEA [None]
  - GASTROINTESTINAL HAEMORRHAGE [None]
  - HYPOAESTHESIA [None]
  - HYPOTENSION [None]
  - HYPOTHERMIA [None]
  - KLEBSIELLA INFECTION [None]
  - MALAISE [None]
  - MYOCARDIAL INFARCTION [None]
  - PARAESTHESIA [None]
  - PNEUMONIA [None]
  - PYREXIA [None]
  - RASH [None]
  - SEPSIS [None]
  - THERAPEUTIC AGENT TOXICITY [None]
  - UNRESPONSIVE TO STIMULI [None]
  - VOMITING [None]
  - WEIGHT DECREASED [None]
